FAERS Safety Report 7499274-2 (Version None)
Quarter: 2011Q2

REPORT INFORMATION
  Report Type: 
  Country: None (occurrence: None)
  Receive Date: 20110524
  Receipt Date: 20110518
  Transmission Date: 20111010
  Serious: Yes (Hospitalization)
  Sender: FDA-Public Use
  Company Number: US-AMGEN-USASP2011025974

PATIENT
  Age: 50 Year
  Sex: Female

DRUGS (5)
  1. TRIPTORELIN [Concomitant]
     Dates: start: 20110121
  2. CYCLOPHOSPHAMIDE [Concomitant]
     Dates: start: 20110121
  3. NEULASTA [Suspect]
     Indication: CHEMOTHERAPY
     Dosage: UNK
     Dates: start: 20110325
  4. TAMOXIFEN CITRATE [Concomitant]
     Dates: start: 20110121
  5. DOCETAXEL [Concomitant]
     Dates: start: 20110121

REACTIONS (1)
  - PAIN IN EXTREMITY [None]
